FAERS Safety Report 21951866 (Version 1)
Quarter: 2023Q1

REPORT INFORMATION
  Report Type: Spontaneous
  Country: US (occurrence: US)
  Receive Date: 20230203
  Receipt Date: 20230203
  Transmission Date: 20230417
  Serious: No
  Sender: FDA-Public Use
  Company Number: US-PFIZER INC-2020338166

PATIENT
  Age: 82 Year
  Sex: Female

DRUGS (3)
  1. IBRANCE [Suspect]
     Active Substance: PALBOCICLIB
     Indication: Breast cancer female
     Dosage: ALTERNATING WITH 75 MG/ (FOR 28 DAYS)
     Route: 048
  2. IBRANCE [Suspect]
     Active Substance: PALBOCICLIB
     Dosage: ALTERNATING WITH 100 MG/ (FOR 28 DAYS)
     Route: 048
  3. IBRANCE [Suspect]
     Active Substance: PALBOCICLIB
     Dosage: 75 MG ALTERNATING WITH 100 MG, 21 DAYS ON, 7 DAYS OFF
     Route: 048

REACTIONS (15)
  - Neoplasm progression [Unknown]
  - Off label use [Unknown]
  - Product dose omission issue [Unknown]
  - Cardiac murmur [Unknown]
  - Dizziness [Unknown]
  - Contusion [Unknown]
  - Oedema peripheral [Unknown]
  - Arthralgia [Unknown]
  - Swelling [Unknown]
  - Gait disturbance [Unknown]
  - Asthenia [Unknown]
  - Hypoaesthesia [Unknown]
  - Memory impairment [Unknown]
  - Fatigue [Unknown]
  - Temperature intolerance [Unknown]
